FAERS Safety Report 14054239 (Version 1)
Quarter: 2017Q4

REPORT INFORMATION
  Report Type: Spontaneous
  Country: US (occurrence: US)
  Receive Date: 20171006
  Receipt Date: 20171006
  Transmission Date: 20180321
  Serious: No
  Sender: FDA-Public Use
  Company Number: US-JNJFOC-20170822094

PATIENT
  Age: 58 Year
  Sex: Male
  Weight: 92.99 kg

DRUGS (3)
  1. MENS ROGAINE EXTRA STRENGTH [Suspect]
     Active Substance: MINOXIDIL
     Route: 061
  2. MENS ROGAINE EXTRA STRENGTH [Suspect]
     Active Substance: MINOXIDIL
     Indication: ALOPECIA
     Dosage: A LITTLE MORE 1/2 CAPFUL
     Route: 061
     Dates: start: 20170808
  3. VIVISCAL [Concomitant]
     Indication: HAIR GROWTH ABNORMAL
     Dosage: 1 TAB, 3 WEEKS
     Route: 065

REACTIONS (4)
  - Overdose [Unknown]
  - Headache [Recovering/Resolving]
  - Dizziness [Recovering/Resolving]
  - Accidental exposure to product [Unknown]

NARRATIVE: CASE EVENT DATE: 20170822
